FAERS Safety Report 4704827-8 (Version None)
Quarter: 2005Q3

REPORT INFORMATION
  Report Type: 
  Country: None (occurrence: None)
  Receive Date: 20050701
  Receipt Date: 20050329
  Transmission Date: 20060218
  Serious: No
  Sender: FDA-Public Use
  Company Number: US-GLAXOSMITHKLINE-A0551767A

PATIENT
  Sex: Female

DRUGS (3)
  1. PARNATE [Suspect]
     Indication: DEPRESSION
     Route: 048
  2. BENADRYL [Concomitant]
  3. CLARITIN [Concomitant]

REACTIONS (1)
  - RASH [None]
